FAERS Safety Report 13116632 (Version 1)
Quarter: 2017Q1

REPORT INFORMATION
  Report Type: Spontaneous
  Country: US (occurrence: US)
  Receive Date: 20170116
  Receipt Date: 20170116
  Transmission Date: 20170428
  Serious: Yes (Other)
  Sender: FDA-Public Use
  Company Number: US-AMGEN-USASP2017004908

PATIENT
  Sex: Male

DRUGS (1)
  1. ENBREL [Suspect]
     Active Substance: ETANERCEPT
     Indication: PRODUCT USED FOR UNKNOWN INDICATION
     Dosage: UNK
     Route: 065

REACTIONS (6)
  - Hyperhidrosis [Unknown]
  - Drug ineffective [Unknown]
  - Tooth loss [Unknown]
  - Immunosuppression [Unknown]
  - Ankylosing spondylitis [Unknown]
  - Staphylococcal infection [Unknown]
